FAERS Safety Report 9691703 (Version 2)
Quarter: 2013Q4

REPORT INFORMATION
  Report Type: Report from Study
  Country: GB (occurrence: GB)
  Receive Date: 20131115
  Receipt Date: 20131120
  Transmission Date: 20140711
  Serious: Yes (Hospitalization)
  Sender: FDA-Public Use
  Company Number: GB-ROCHE-1303405

PATIENT
  Age: 61 Year
  Sex: Female
  Weight: 54.3 kg

DRUGS (10)
  1. RITUXIMAB [Suspect]
     Indication: B-CELL LYMPHOMA
     Dosage: VOLUME OF LAST DOSE TAKEN 587 ML AT A DOSE CONCENTRATION OF 0.97 MG/ML ON 30/SEP/2013 PRIOR TO SAE.
     Route: 042
     Dates: start: 20130708
  2. BENDAMUSTINE [Suspect]
     Indication: B-CELL LYMPHOMA
     Dosage: LAST DOSE TAKEN 137.5 MG ON 30/SEP/2013 PRIOR TO SAE.
     Route: 042
     Dates: start: 20130708
  3. LANSOPRAZOLE [Concomitant]
     Route: 065
     Dates: start: 20130515
  4. ENOXAPARIN [Concomitant]
     Route: 058
     Dates: start: 20130614
  5. ONDANSETRON [Concomitant]
     Route: 065
     Dates: start: 20130708
  6. ACICLOVIR [Concomitant]
     Route: 065
     Dates: start: 20130715
  7. FLUCONAZOLE [Concomitant]
     Route: 065
     Dates: start: 20130715
  8. CO-TRIMOXAZOLE [Concomitant]
     Route: 065
     Dates: start: 20130708
  9. LACTULOSE [Concomitant]
     Indication: CONSTIPATION
     Route: 065
     Dates: start: 20130812
  10. FILGRASTIM [Concomitant]
     Indication: NEUTROPENIA
     Route: 065
     Dates: start: 20131104, end: 20131107

REACTIONS (1)
  - Hypercalcaemia [Recovered/Resolved]
